FAERS Safety Report 7807969-3 (Version None)
Quarter: 2011Q4

REPORT INFORMATION
  Report Type: 
  Country: None (occurrence: None)
  Receive Date: 20111011
  Receipt Date: 20111011
  Transmission Date: 20120403
  Serious: Yes (Other)
  Sender: FDA-Public Use
  Company Number: None

PATIENT
  Age: 7 Year
  Sex: Female
  Weight: 29.483 kg

DRUGS (2)
  1. BACTRIM [Suspect]
     Indication: STAPHYLOCOCCAL INFECTION
     Dosage: 140
     Route: 048
     Dates: start: 20111007, end: 20111009
  2. MUPIROCIN [Concomitant]
     Indication: STAPHYLOCOCCAL INFECTION
     Dosage: 2%
     Route: 061
     Dates: start: 20111007, end: 20111009

REACTIONS (3)
  - ERYTHEMA [None]
  - PRURITUS [None]
  - RASH [None]
